FAERS Safety Report 4608963-6 (Version None)
Quarter: 2005Q1

REPORT INFORMATION
  Report Type: 
  Country: None (occurrence: None)
  Receive Date: 20050310
  Receipt Date: 20050225
  Transmission Date: 20050727
  Serious: Yes (Hospitalization)
  Sender: FDA-Public Use
  Company Number: 2005-FF-00133FF

PATIENT
  Age: 53 Year
  Sex: Female

DRUGS (6)
  1. VIRAMUNE [Suspect]
     Dosage: 400 MG (MG) PO
     Route: 048
     Dates: start: 20030410
  2. LEXOMIL (BROMAZEPAM) [Concomitant]
  3. VIDEX [Concomitant]
  4. PAROXETINE HCL [Concomitant]
  5. EPIVIR [Concomitant]
  6. BACTRIM FORTE (BACTRIM) [Concomitant]

REACTIONS (10)
  - ALANINE AMINOTRANSFERASE INCREASED [None]
  - ASPARTATE AMINOTRANSFERASE INCREASED [None]
  - BACILLUS INFECTION [None]
  - CD4 LYMPHOCYTES DECREASED [None]
  - EOSINOPHILIA [None]
  - GAMMA-GLUTAMYLTRANSFERASE INCREASED [None]
  - HAEMOGLOBIN INCREASED [None]
  - PATHOGEN RESISTANCE [None]
  - PULMONARY GRANULOMA [None]
  - PULMONARY NECROSIS [None]
